FAERS Safety Report 22296141 (Version 1)
Quarter: 2023Q2

REPORT INFORMATION
  Report Type: Spontaneous
  Country: RS (occurrence: RS)
  Receive Date: 20230508
  Receipt Date: 20230508
  Transmission Date: 20230721
  Serious: Yes (Life-Threatening)
  Sender: FDA-Public Use
  Company Number: RS-PFIZER INC-PV202300079662

PATIENT
  Age: 12 Year
  Sex: Female
  Weight: 46.8 kg

DRUGS (2)
  1. METHOTREXATE SODIUM [Suspect]
     Active Substance: METHOTREXATE SODIUM
     Indication: Osteosarcoma
     Dosage: 500 MG/20ML
     Route: 042
     Dates: start: 20230328
  2. ONDANSETRON HYDROCHLORIDE [Concomitant]
     Active Substance: ONDANSETRON HYDROCHLORIDE
     Dosage: 4 MG
     Route: 042

REACTIONS (7)
  - Blood creatinine increased [Unknown]
  - Blood bilirubin increased [Unknown]
  - Hyperuricaemia [Unknown]
  - Toxicity to various agents [Unknown]
  - Abdominal pain [Unknown]
  - Oedema [Unknown]
  - Malaise [Unknown]

NARRATIVE: CASE EVENT DATE: 20230328
